FAERS Safety Report 8013658-5 (Version None)
Quarter: 2011Q4

REPORT INFORMATION
  Report Type: 
  Country: None (occurrence: None)
  Receive Date: 20111229
  Receipt Date: 20111222
  Transmission Date: 20120403
  Serious: Yes (Hospitalization)
  Sender: FDA-Public Use
  Company Number: JP-ABBOTT-11P-087-0845581-00

PATIENT
  Sex: Male

DRUGS (7)
  1. EBASTINE [Concomitant]
     Indication: COUGH
     Route: 048
     Dates: end: 20110808
  2. THEOPHYLLINE [Concomitant]
     Indication: COUGH
     Route: 048
     Dates: end: 20110808
  3. RESPLEN [Concomitant]
     Indication: COUGH
     Route: 048
     Dates: end: 20110808
  4. CLARITHROMYCIN [Suspect]
     Indication: COUGH
     Route: 048
     Dates: end: 20110808
  5. MUCODYNE [Suspect]
     Indication: COUGH
     Route: 048
     Dates: start: 20110805, end: 20110808
  6. REBAMIPIDE [Concomitant]
     Indication: COUGH
     Route: 048
     Dates: end: 20110808
  7. HUSCODE [Concomitant]
     Indication: COUGH
     Route: 048
     Dates: end: 20110808

REACTIONS (1)
  - LIVER DISORDER [None]
